FAERS Safety Report 7909427-4 (Version None)
Quarter: 2011Q4

REPORT INFORMATION
  Report Type: 
  Country: None (occurrence: None)
  Receive Date: 20111111
  Receipt Date: 20111108
  Transmission Date: 20120403
  Serious: Yes (Hospitalization)
  Sender: FDA-Public Use
  Company Number: US-B.I. PHARMACEUTICALS,INC./RIDGEFIELD-2011-BP-03764BP

PATIENT
  Age: 78 Year
  Sex: Male
  Weight: 80 kg

DRUGS (10)
  1. MULTAQ [Concomitant]
     Dosage: 800 MG
  2. VITAMIN D [Concomitant]
     Dosage: 2000 U
  3. PRADAXA [Suspect]
     Indication: ATRIAL FIBRILLATION
     Dosage: 300 MG
     Route: 048
     Dates: start: 20110129, end: 20110204
  4. PLENDIL [Concomitant]
     Dosage: 10 MG
  5. ALLOPURINOL [Concomitant]
     Dosage: 300 MG
  6. PEPCID [Concomitant]
     Dosage: 20 MG
  7. LIPITOR [Concomitant]
  8. ASPIRIN [Concomitant]
     Dosage: 81 MG
  9. PRADAXA [Suspect]
     Indication: PROPHYLAXIS
  10. LASIX [Concomitant]
     Dosage: 40 MG

REACTIONS (2)
  - MELAENA [None]
  - GASTROINTESTINAL HAEMORRHAGE [None]
